FAERS Safety Report 5115629-5 (Version None)
Quarter: 2006Q3

REPORT INFORMATION
  Report Type: 
  Country: None (occurrence: None)
  Receive Date: 20060927
  Receipt Date: 20060829
  Transmission Date: 20061208
  Serious: Yes (Other)
  Sender: FDA-Public Use
  Company Number: US-AMGEN-US191573

PATIENT
  Sex: Female

DRUGS (12)
  1. ENBREL [Suspect]
     Indication: RHEUMATOID ARTHRITIS
     Route: 058
     Dates: start: 20030501, end: 20060701
  2. HUMIRA [Concomitant]
     Dates: start: 20060701
  3. DYAZIDE [Concomitant]
  4. ZOCOR [Concomitant]
  5. ELAVIL [Concomitant]
  6. FUROSEMIDE [Concomitant]
  7. TERAZOSIN HCL [Concomitant]
  8. ACETYLCYSTEINE [Concomitant]
  9. DILACOR XR [Concomitant]
  10. TOPROL-XL [Concomitant]
  11. DICLOFENAC [Concomitant]
  12. METHYLDOPA [Concomitant]

REACTIONS (2)
  - INTERSTITIAL LUNG DISEASE [None]
  - PANCREATIC NEOPLASM [None]
